FAERS Safety Report 13585248 (Version 1)
Quarter: 2017Q2

REPORT INFORMATION
  Report Type: Spontaneous
  Country: US (occurrence: US)
  Receive Date: 20170526
  Receipt Date: 20170526
  Transmission Date: 20170830
  Serious: No
  Sender: FDA-Public Use
  Company Number: US-MALLINCKRODT-T201601797

PATIENT
  Age: 58 Year
  Sex: Female
  Weight: 59 kg

DRUGS (10)
  1. KADIAN [Concomitant]
     Active Substance: MORPHINE SULFATE
     Dosage: 20 MG PRN
  2. KADIAN [Concomitant]
     Active Substance: MORPHINE SULFATE
     Dosage: 50 MG PRN
  3. PRILOSEC [Concomitant]
     Active Substance: OMEPRAZOLE MAGNESIUM
  4. ASPIRIN. [Concomitant]
     Active Substance: ASPIRIN
  5. HYDROCODONE/ACETAMINOPHEN [Suspect]
     Active Substance: ACETAMINOPHEN\HYDROCODONE
     Indication: PAIN
     Dosage: 1/2 OF A 7.5/325 MG TABLET, BID
     Route: 048
     Dates: start: 20160419, end: 20160421
  6. ULTRAM [Concomitant]
     Active Substance: TRAMADOL HYDROCHLORIDE
  7. MELOXICAM. [Concomitant]
     Active Substance: MELOXICAM
  8. QUININE [Concomitant]
     Active Substance: QUININE
  9. CETRIZINE [Concomitant]
     Active Substance: CETIRIZINE HYDROCHLORIDE
  10. HYDROCODONE/ACETAMINOPHEN [Suspect]
     Active Substance: ACETAMINOPHEN\HYDROCODONE
     Dosage: 1/4 OF A 7.5/500 MG TABLET (ONCE OR TWICE DAILY)
     Route: 048
     Dates: start: 201604

REACTIONS (3)
  - Self-medication [Not Recovered/Not Resolved]
  - Somnolence [Recovered/Resolved]
  - Drug ineffective [Recovered/Resolved]

NARRATIVE: CASE EVENT DATE: 201604
